FAERS Safety Report 6249917-6 (Version None)
Quarter: 2009Q2

REPORT INFORMATION
  Report Type: 
  Country: None (occurrence: None)
  Receive Date: 20090629
  Receipt Date: 20090618
  Transmission Date: 20091009
  Serious: Yes (Death)
  Sender: FDA-Public Use
  Company Number: JP-BAXTER-2009BH010336

PATIENT
  Age: 47 Year
  Sex: Male

DRUGS (6)
  1. ENDOXAN BAXTER [Suspect]
     Indication: HEPATIC NEOPLASM MALIGNANT
     Route: 042
  2. METHYLPREDNISOLONE ACETATE [Suspect]
     Indication: HEPATIC NEOPLASM MALIGNANT
     Route: 014
  3. TACROLIMUS [Suspect]
     Indication: HEPATIC NEOPLASM MALIGNANT
     Route: 048
  4. MYCOPHENOLATE MOFETIL [Suspect]
     Indication: HEPATIC NEOPLASM MALIGNANT
     Route: 048
  5. PROSTAGLANDIN E1 [Concomitant]
     Indication: HEPATIC NEOPLASM MALIGNANT
     Route: 014
  6. FOY [Concomitant]
     Indication: HEPATIC NEOPLASM MALIGNANT
     Route: 042

REACTIONS (1)
  - HEPATIC NEOPLASM MALIGNANT RECURRENT [None]
